FAERS Safety Report 8435955-1 (Version None)
Quarter: 2012Q2

REPORT INFORMATION
  Report Type: 
  Country: None (occurrence: None)
  Receive Date: 20120614
  Receipt Date: 20120605
  Transmission Date: 20120825
  Serious: Yes (Other)
  Sender: FDA-Public Use
  Company Number: JP-JNJFOC-20120410295

PATIENT
  Age: 63 Year
  Sex: Male

DRUGS (3)
  1. SIMPONI [Suspect]
     Indication: PRODUCT USED FOR UNKNOWN INDICATION
     Route: 058
     Dates: start: 20120522
  2. METHOTREXATE [Suspect]
     Indication: PRODUCT USED FOR UNKNOWN INDICATION
     Route: 065
     Dates: start: 20111213
  3. SIMPONI [Suspect]
     Route: 058
     Dates: start: 20120110, end: 20120306

REACTIONS (1)
  - LIVER FUNCTION TEST ABNORMAL [None]
